FAERS Safety Report 24244823 (Version 1)
Quarter: 2024Q3

REPORT INFORMATION
  Report Type: Spontaneous
  Country: UY (occurrence: UY)
  Receive Date: 20240823
  Receipt Date: 20240823
  Transmission Date: 20241017
  Serious: No
  Sender: PFIZER
  Company Number: UY-PFIZER INC-202400236582

PATIENT
  Age: 15 Year
  Sex: Female

DRUGS (1)
  1. GENOTROPIN [Suspect]
     Active Substance: SOMATROPIN
     Indication: Turner^s syndrome
     Dosage: 1.4 MG, 1X/DAY
     Dates: start: 20130715

REACTIONS (1)
  - Device mechanical issue [Unknown]
